FAERS Safety Report 17952786 (Version 1)
Quarter: 2020Q2

REPORT INFORMATION
  Report Type: Spontaneous
  Country: LT (occurrence: LT)
  Receive Date: 20200626
  Receipt Date: 20200626
  Transmission Date: 20200714
  Serious: Yes (Death)
  Sender: FDA-Public Use
  Company Number: LT-BAXTER-2018BAX008377

PATIENT
  Age: 17 Year
  Sex: Male
  Weight: 37 kg

DRUGS (5)
  1. SPIRONOLACTONE. [Suspect]
     Active Substance: SPIRONOLACTONE
     Indication: CONGESTIVE CARDIOMYOPATHY
     Route: 065
  2. CARVEDILOL. [Suspect]
     Active Substance: CARVEDILOL
     Indication: CONGESTIVE CARDIOMYOPATHY
     Route: 065
  3. FUROSEMIDE NORAMEDA 10 MG/ML INJEKCINIS TIRPALAS 5ML PACK OF 25 [Suspect]
     Active Substance: FUROSEMIDE
     Indication: CONGESTIVE CARDIOMYOPATHY
     Route: 065
  4. ENALAPRIL [Suspect]
     Active Substance: ENALAPRIL
     Indication: CONGESTIVE CARDIOMYOPATHY
     Route: 065
  5. DOBUTAMINE [Suspect]
     Active Substance: DOBUTAMINE HYDROCHLORIDE
     Indication: CONGESTIVE CARDIOMYOPATHY
     Route: 065

REACTIONS (1)
  - Drug ineffective [Fatal]
